FAERS Safety Report 9119294 (Version 3)
Quarter: 2013Q2

REPORT INFORMATION
  Report Type: Spontaneous
  Country: US (occurrence: None)
  Receive Date: 20130130
  Receipt Date: 20130614
  Transmission Date: 20140414
  Serious: Yes (Hospitalization, Other)
  Sender: FDA-Public Use
  Company Number: 2012-002108

PATIENT
  Age: 60 Year
  Sex: Female

DRUGS (33)
  1. ACTONEL [Suspect]
     Indication: OSTEOPOROSIS
     Route: 048
     Dates: start: 20040127, end: 2006
  2. ACTONEL [Suspect]
     Route: 048
     Dates: start: 20040127, end: 2006
  3. ACTONEL [Suspect]
     Indication: OSTEOPOROSIS
     Route: 048
     Dates: start: 200206
  4. ACTONEL [Suspect]
     Route: 048
     Dates: start: 200206
  5. FOSAMAX [Suspect]
     Indication: OSTEOPOROSIS
     Route: 048
     Dates: start: 20060331, end: 20060824
  6. BONIVA [Suspect]
     Indication: OSTEOPOROSIS
     Dates: start: 20060824, end: 200912
  7. PREDNISONE [Concomitant]
  8. TESTOSTERONE [Concomitant]
  9. TAMOXIFEN [Concomitant]
  10. SYNTHROID (LEVOTHYROXINE SODIUM) [Concomitant]
  11. AZMACORT [Concomitant]
  12. NASACORT [Concomitant]
  13. PULMICORT (BUDESONIDE) [Concomitant]
  14. RHINOCORT AQUA [Concomitant]
  15. SEREVENT [Concomitant]
  16. SINGULAIR [Concomitant]
  17. BEXTRA [Concomitant]
  18. MOBIC [Concomitant]
  19. NEXIUM [Concomitant]
  20. DITROPAN XL [Concomitant]
  21. EFFEXOR XR (VENLAFAXINE HYDROCHLORIDE) (75 MILLIGRAM, CAPSULE) (VENLAFAXINE HYDROCHLORIDE) [Concomitant]
  22. VERAPAMIL (VERAPAMIL) [Concomitant]
  23. ASPIRIN [Concomitant]
  24. CALCIUM [Concomitant]
  25. VITAMIN D [Concomitant]
  26. GLUCOSAMINE [Concomitant]
  27. ECHINACEA [Concomitant]
  28. MULTIVITAMIN [Concomitant]
  29. VITAMIN E [Concomitant]
  30. ULTRAM [Concomitant]
  31. PREVACID (LANSOPRAZOLE) [Concomitant]
  32. CLONIDINE [Concomitant]
  33. DOXEPIN [Concomitant]

REACTIONS (6)
  - Stress fracture [None]
  - Femur fracture [None]
  - Bone disorder [None]
  - Low turnover osteopathy [None]
  - Bone marrow oedema syndrome [None]
  - Arthralgia [None]
